FAERS Safety Report 23292428 (Version 1)
Quarter: 2023Q4

REPORT INFORMATION
  Report Type: Spontaneous
  Country: None (occurrence: US)
  Receive Date: 20231213
  Receipt Date: 20231213
  Transmission Date: 20240109
  Serious: No
  Sender: FDA-Public Use
  Company Number: US-Harrow Eye-2149298

PATIENT
  Sex: Female

DRUGS (25)
  1. CLOFAZIMINE [Suspect]
     Active Substance: CLOFAZIMINE
     Indication: Mycobacterium avium complex infection
  2. CLOFAZIMINE [Suspect]
     Active Substance: CLOFAZIMINE
  3. CLOFAZIMINE [Suspect]
     Active Substance: CLOFAZIMINE
  4. AZITHROMYCIN [Suspect]
     Active Substance: AZITHROMYCIN
  5. CLARITHROMYCIN [Suspect]
     Active Substance: CLARITHROMYCIN
  6. LINEZOLID [Suspect]
     Active Substance: LINEZOLID
  7. LINEZOLID [Suspect]
     Active Substance: LINEZOLID
  8. CIPROFLOXACIN [Suspect]
     Active Substance: CIPROFLOXACIN
  9. MINOCYCLINE [Suspect]
     Active Substance: MINOCYCLINE HYDROCHLORIDE
  10. MOXIFLOXACIN [Suspect]
     Active Substance: MOXIFLOXACIN
  11. TOBRAMYCIN [Suspect]
     Active Substance: TOBRAMYCIN
  12. DOXYCYCLINE [Suspect]
     Active Substance: DOXYCYCLINE
  13. TIGECYCLINE [Suspect]
     Active Substance: TIGECYCLINE
  14. GENTAMICIN [Suspect]
     Active Substance: GENTAMICIN
  15. ETHAMBUTOL [Suspect]
     Active Substance: ETHAMBUTOL HYDROCHLORIDE
  16. SULFAMETHOXAZOLE AND TRIMETHOPRIM [Suspect]
     Active Substance: SULFAMETHOXAZOLE\TRIMETHOPRIM
  17. RIFAMPIN [Suspect]
     Active Substance: RIFAMPIN
  18. RIFAMPIN [Suspect]
     Active Substance: RIFAMPIN
  19. AMIKACIN [Suspect]
     Active Substance: AMIKACIN
  20. RIFABUTIN [Suspect]
     Active Substance: RIFABUTIN
  21. STREPTOMYCIN [Suspect]
     Active Substance: STREPTOMYCIN SULFATE
  22. CEFEPIME [Suspect]
     Active Substance: CEFEPIME HYDROCHLORIDE
  23. CEFOTAXIME [Suspect]
     Active Substance: CEFOTAXIME SODIUM
  24. IMIPENEM [Suspect]
     Active Substance: IMIPENEM
  25. KANAMYCIN [Suspect]
     Active Substance: KANAMYCIN A SULFATE

REACTIONS (1)
  - Adverse event [Unknown]
